FAERS Safety Report 10029854 (Version 1)
Quarter: 2014Q1

REPORT INFORMATION
  Report Type: Spontaneous
  Country: US (occurrence: None)
  Receive Date: 20140320
  Receipt Date: 20140320
  Transmission Date: 20141002
  Serious: Yes (Life-Threatening, Other)
  Sender: FDA-Public Use
  Company Number: 001686984A

PATIENT
  Age: 13 Year
  Sex: Female

DRUGS (3)
  1. PROACTIV + SKIN SMOOTHING EXFOLIATOR [Suspect]
     Indication: ACNE
     Dosage: TWICE DAILY DERMAL
     Dates: start: 20140218, end: 20140221
  2. PROACTIV + PORE TARGETING TREATMENT [Suspect]
     Indication: ACNE
     Dates: start: 20140218, end: 20140221
  3. PROACTIV + COMPLEXION PERFECTING HYDRATOR [Suspect]
     Indication: ACNE
     Dosage: TWICE DAILY DERMAL
     Dates: start: 20140218, end: 20140221

REACTIONS (6)
  - Burning sensation [None]
  - Paraesthesia [None]
  - Swelling face [None]
  - Thermal burn [None]
  - Eye swelling [None]
  - Pharyngeal disorder [None]
